FAERS Safety Report 12401895 (Version 2)
Quarter: 2016Q2

REPORT INFORMATION
  Report Type: Spontaneous
  Country: US (occurrence: US)
  Receive Date: 20160525
  Receipt Date: 20160527
  Transmission Date: 20160815
  Serious: No
  Sender: FDA-Public Use
  Company Number: US-SA-2015SA205618

PATIENT
  Age: 68 Year
  Sex: Male

DRUGS (10)
  1. PROTONIX [Concomitant]
     Active Substance: PANTOPRAZOLE SODIUM
  2. ALPRAZOLAM. [Concomitant]
     Active Substance: ALPRAZOLAM
  3. SOLOSTAR [Concomitant]
     Active Substance: DEVICE
     Dates: start: 201501
  4. OMEGA 3 [Concomitant]
     Active Substance: OMEGA-3 FATTY ACIDS
  5. LANTUS SOLOSTAR [Suspect]
     Active Substance: INSULIN GLARGINE
     Indication: DIABETES MELLITUS
     Route: 065
     Dates: start: 201502
  6. GLUCOPHAGE [Concomitant]
     Active Substance: METFORMIN HYDROCHLORIDE
  7. FLEXPEN [Concomitant]
     Active Substance: UNSPECIFIED INGREDIENT
  8. LEXAPRO [Concomitant]
     Active Substance: ESCITALOPRAM OXALATE
  9. METOPROLOL. [Concomitant]
     Active Substance: METOPROLOL
  10. NOVOLOG [Concomitant]
     Active Substance: INSULIN ASPART
     Dosage: 8 UNITS AM, 6 UNITS NOON, 7 UNITS SUPPER

REACTIONS (1)
  - Dizziness [Unknown]
